FAERS Safety Report 4308245-6 (Version None)
Quarter: 2004Q1

REPORT INFORMATION
  Report Type: 
  Country: None (occurrence: None)
  Receive Date: 20040301
  Receipt Date: 20030919
  Transmission Date: 20041129
  Serious: No
  Sender: FDA-Public Use
  Company Number: US-BRISTOL-MYERS SQUIBB COMPANY-12390985

PATIENT
  Age: 67 Year
  Sex: Male
  Weight: 73 kg

DRUGS (2)
  1. GLUCOPHAGE [Suspect]
     Indication: DIABETES MELLITUS
  2. LIPITOR [Concomitant]

REACTIONS (1)
  - BLOOD GLUCOSE ABNORMAL [None]
